FAERS Safety Report 11440829 (Version 1)
Quarter: 2015Q3

REPORT INFORMATION
  Report Type: Spontaneous
  Country: US (occurrence: None)
  Receive Date: 20150831
  Receipt Date: 20150831
  Transmission Date: 20151125
  Serious: Yes (Life-Threatening)
  Sender: FDA-Public Use
  Company Number: None

PATIENT
  Age: 35 Year
  Sex: Female
  Weight: 55 kg

DRUGS (1)
  1. INSULIN [Suspect]
     Active Substance: INSULIN NOS
     Indication: TYPE 1 DIABETES MELLITUS
     Dosage: CONTINUOUS SUBCUTANEOUS
     Route: 058

REACTIONS (3)
  - Device malfunction [None]
  - Unresponsive to stimuli [None]
  - Blood glucose decreased [None]

NARRATIVE: CASE EVENT DATE: 20150827
